FAERS Safety Report 6780814-3 (Version None)
Quarter: 2010Q2

REPORT INFORMATION
  Report Type: 
  Country: None (occurrence: None)
  Receive Date: 20100621
  Receipt Date: 20100602
  Transmission Date: 20101027
  Serious: Yes (Hospitalization, Other)
  Sender: FDA-Public Use
  Company Number: US-BAYER-200938337NA

PATIENT
  Sex: Female
  Weight: 54 kg

DRUGS (6)
  1. YASMIN [Suspect]
     Indication: CONTRACEPTION
     Route: 048
     Dates: start: 20050101, end: 20071101
  2. YAZ [Suspect]
     Indication: CONTRACEPTION
  3. TYLENOL W/ CODEINE [Concomitant]
     Indication: ABDOMINAL PAIN
     Dates: start: 20050101, end: 20060101
  4. HYDROCODONE [Concomitant]
     Dosage: 7.5 MG/750 MG
  5. PAROXETINE HCL [Concomitant]
  6. ALPRAZOLAM [Concomitant]

REACTIONS (5)
  - ABDOMINAL PAIN [None]
  - DEEP VEIN THROMBOSIS [None]
  - MENTAL DISORDER [None]
  - PAIN [None]
  - PULMONARY EMBOLISM [None]
